APPROVED DRUG PRODUCT: LEFLUNOMIDE
Active Ingredient: LEFLUNOMIDE
Strength: 10MG
Dosage Form/Route: TABLET;ORAL
Application: A211863 | Product #001 | TE Code: AB
Applicant: LUPIN LTD
Approved: Feb 4, 2020 | RLD: No | RS: No | Type: RX